FAERS Safety Report 4455187-1 (Version None)
Quarter: 2004Q3

REPORT INFORMATION
  Report Type: 
  Country: None (occurrence: None)
  Receive Date: 20040825
  Receipt Date: 20040607
  Transmission Date: 20050211
  Serious: No
  Sender: FDA-Public Use
  Company Number: 207109

PATIENT
  Sex: Female

DRUGS (1)
  1. RAPTIVA [Suspect]
     Indication: PSORIASIS
     Dosage: 1 MG/KG,1/WEEK,SUBCUTANEOUS
     Route: 058
     Dates: start: 20040505, end: 20040603

REACTIONS (3)
  - ARTHRALGIA [None]
  - CHILLS [None]
  - PYREXIA [None]
